FAERS Safety Report 8969635 (Version 15)
Quarter: 2014Q2

REPORT INFORMATION
  Report Type: Report from Study
  Country: CA (occurrence: CA)
  Receive Date: 20121218
  Receipt Date: 20140429
  Transmission Date: 20141212
  Serious: Yes (Hospitalization)
  Sender: FDA-Public Use
  Company Number: PHHY2012CA116204

PATIENT
  Age: 65 Year
  Sex: Female

DRUGS (5)
  1. TASIGNA [Suspect]
     Indication: CHRONIC MYELOID LEUKAEMIA
     Dosage: 300 MG, BID
     Route: 048
     Dates: start: 20121210
  2. BENEFIBER [Concomitant]
  3. INSULIN [Concomitant]
  4. FLAXSEED OIL [Concomitant]
  5. MILK OF MAGNESIA [Concomitant]

REACTIONS (19)
  - Intestinal obstruction [Recovered/Resolved]
  - Concomitant disease aggravated [Recovered/Resolved]
  - Urinary tract infection [Recovered/Resolved]
  - Sunburn [Recovered/Resolved]
  - Skin disorder [Recovered/Resolved]
  - Rhinorrhoea [Recovered/Resolved]
  - Dysphagia [Recovered/Resolved]
  - Fall [Recovered/Resolved]
  - Somnolence [Unknown]
  - Dry mouth [Recovered/Resolved]
  - Nausea [Recovered/Resolved]
  - Vomiting [Recovered/Resolved]
  - Constipation [Recovered/Resolved]
  - Flatulence [Recovered/Resolved]
  - Blood glucose increased [Recovered/Resolved]
  - Fatigue [Unknown]
  - Alopecia [Recovered/Resolved]
  - Nasopharyngitis [Recovered/Resolved]
  - Peripheral swelling [Recovered/Resolved]
